APPROVED DRUG PRODUCT: FLURBIPROFEN
Active Ingredient: FLURBIPROFEN
Strength: 50MG
Dosage Form/Route: TABLET;ORAL
Application: A074647 | Product #001
Applicant: PLIVA INC
Approved: Apr 1, 1997 | RLD: No | RS: No | Type: DISCN